FAERS Safety Report 4815126-8 (Version None)
Quarter: 2005Q4

REPORT INFORMATION
  Report Type: 
  Country: None (occurrence: None)
  Receive Date: 20051028
  Receipt Date: 20051010
  Transmission Date: 20060501
  Serious: Yes (Hospitalization)
  Sender: FDA-Public Use
  Company Number: DE-BOEHRINGER INGELHEIM PHARMACEUTICALS, INC.-2005-DE-04201DE

PATIENT
  Sex: Female
  Weight: 70 kg

DRUGS (6)
  1. THOMAPYRIN SCHMERZTABLETTEN [Suspect]
     Dosage: 1X17 TABLETS
     Route: 048
  2. CATAPRESAN [Suspect]
     Dosage: 1X8 TABLETS
     Route: 048
  3. AMLODIPINE [Suspect]
     Route: 048
  4. COTRIM DS [Suspect]
     Dosage: 1X7 TABLETS
     Route: 048
  5. HYDROCHLOROTHIAZIDE [Suspect]
     Route: 048
  6. VIVINOX SLEEP [Suspect]
     Route: 048

REACTIONS (5)
  - BLOOD POTASSIUM DECREASED [None]
  - DRUG ABUSER [None]
  - HYPERTENSION [None]
  - SOPOR [None]
  - SUICIDE ATTEMPT [None]
